FAERS Safety Report 10099387 (Version 1)
Quarter: 2014Q2

REPORT INFORMATION
  Report Type: Spontaneous
  Country: US (occurrence: US)
  Receive Date: 20140423
  Receipt Date: 20140423
  Transmission Date: 20141212
  Serious: Yes (Other)
  Sender: FDA-Public Use
  Company Number: US-FRI-1000066653

PATIENT
  Age: 76 Year
  Sex: Female

DRUGS (6)
  1. LINZESS [Suspect]
     Indication: IRRITABLE BOWEL SYNDROME
     Dosage: 145 MG
     Route: 048
     Dates: start: 201308, end: 2013
  2. LINZESS [Suspect]
     Indication: IRRITABLE BOWEL SYNDROME
     Dosage: 290 MG
     Route: 048
     Dates: start: 2013, end: 201402
  3. LINZESS [Suspect]
     Dosage: 290 MG
     Route: 048
     Dates: start: 20140423
  4. PERI-COLACE [Concomitant]
  5. DOMPERIDONE [Concomitant]
     Dosage: BID
  6. MIRALAX [Concomitant]

REACTIONS (2)
  - Impaired gastric emptying [Not Recovered/Not Resolved]
  - Drug ineffective [Recovered/Resolved]
